FAERS Safety Report 7977324-4 (Version None)
Quarter: 2011Q4

REPORT INFORMATION
  Report Type: 
  Country: None (occurrence: None)
  Receive Date: 20111213
  Receipt Date: 20111107
  Transmission Date: 20120403
  Serious: No
  Sender: FDA-Public Use
  Company Number: US-AMGEN-USASP2011024495

PATIENT
  Age: 24 Year
  Sex: Male

DRUGS (1)
  1. ENBREL [Suspect]
     Indication: ANKYLOSING SPONDYLITIS
     Dosage: 50 MG, QWK
     Dates: start: 20110422, end: 20110101

REACTIONS (5)
  - PARAESTHESIA [None]
  - RASH [None]
  - ERYTHEMA [None]
  - HYPOAESTHESIA [None]
  - PYREXIA [None]
